FAERS Safety Report 10068677 (Version 2)
Quarter: 2014Q2

REPORT INFORMATION
  Report Type: Report from Study
  Country: NZ (occurrence: NZ)
  Receive Date: 20140409
  Receipt Date: 20140526
  Transmission Date: 20141212
  Serious: Yes (Hospitalization, Other)
  Sender: FDA-Public Use
  Company Number: PHHY2014NZ042083

PATIENT
  Age: 57 Year
  Sex: Male

DRUGS (11)
  1. CLOZARIL [Suspect]
     Indication: SCHIZOPHRENIA
     Dosage: 300 MG, QD
     Dates: start: 20140310, end: 20140324
  2. CLOZARIL [Suspect]
     Indication: MANIA
  3. LITHIUM CARBONATE [Concomitant]
     Indication: MANIA
     Dosage: 600 MG, OD
     Route: 048
     Dates: start: 20140310
  4. BUFAGAN//PROMETHAZINE [Concomitant]
     Dosage: 50 MG, AT NIGHT
     Route: 048
     Dates: start: 20140310
  5. BUFAGAN//PROMETHAZINE [Concomitant]
     Dosage: 25 MG, PRN NIGHT (MAXIMUM 75 MG/24 HRS)
     Route: 048
  6. CLONAZEPAM [Concomitant]
     Indication: AGITATION
     Dosage: 1 MG, Q6H PRN
     Route: 048
     Dates: start: 20140310
  7. LAXSOL [Concomitant]
     Dosage: 1 TO 2 TABLETS BD PRN
     Route: 048
     Dates: start: 20140325
  8. LAXSOL [Concomitant]
     Dosage: 1 TO 2 TABLETS BD PRN
     Route: 048
     Dates: start: 20140326
  9. METAMUCIL [Concomitant]
     Indication: CONSTIPATION
     Dosage: 6 G, PRN
     Route: 048
     Dates: start: 20140312
  10. METAMUCIL [Concomitant]
     Dosage: 6 G, PRN
     Route: 048
     Dates: start: 20140326
  11. ZOPICLONE [Concomitant]
     Dosage: 7.5 MG, PRN NOCTE
     Dates: start: 20140326

REACTIONS (14)
  - Mental impairment [Unknown]
  - Cardiomyopathy [Recovered/Resolved]
  - Myocarditis [Recovered/Resolved]
  - Tachycardia [Recovered/Resolved]
  - Troponin T increased [Recovered/Resolved]
  - C-reactive protein increased [Recovered/Resolved]
  - Abnormal behaviour [Unknown]
  - Ejection fraction decreased [Unknown]
  - Blood sodium decreased [Recovered/Resolved]
  - Mean cell volume increased [Recovered/Resolved]
  - Mean cell haemoglobin increased [Not Recovered/Not Resolved]
  - Monocyte count increased [Recovered/Resolved]
  - Eosinophil count increased [Recovered/Resolved]
  - Hallucination [Unknown]
